FAERS Safety Report 15456164 (Version 1)
Quarter: 2018Q3

REPORT INFORMATION
  Report Type: Spontaneous
  Country: US (occurrence: US)
  Receive Date: 20180928
  Receipt Date: 20180928
  Transmission Date: 20181010
  Serious: No
  Sender: FDA-Public Use
  Company Number: None

PATIENT

DRUGS (1)
  1. GAMUNEX?C [Suspect]
     Active Substance: HUMAN IMMUNOGLOBULIN G
     Dosage: ?          OTHER FREQUENCY:DAILY X 3 DAYS.;?
     Route: 042
     Dates: start: 20180920

REACTIONS (3)
  - Skin exfoliation [None]
  - Headache [None]
  - Pyrexia [None]

NARRATIVE: CASE EVENT DATE: 20180920
